FAERS Safety Report 20819420 (Version 1)
Quarter: 2022Q2

REPORT INFORMATION
  Report Type: Spontaneous
  Country: US (occurrence: None)
  Receive Date: 20220511
  Receipt Date: 20220511
  Transmission Date: 20220721
  Serious: Yes (unspecified)
  Sender: FDA-Public Use
  Company Number: None

PATIENT
  Age: 56 Year
  Sex: Female
  Weight: 66.15 kg

DRUGS (3)
  1. VUITY [Suspect]
     Active Substance: PILOCARPINE HYDROCHLORIDE
     Indication: Presbyopia
     Dosage: OTHER QUANTITY : 1 DROP(S);?FREQUENCY : DAILY;?
     Route: 047
  2. ESTRADIOL [Concomitant]
     Active Substance: ESTRADIOL
  3. TRAMADOL [Concomitant]
     Active Substance: TRAMADOL

REACTIONS (6)
  - Eye pain [None]
  - Nasal congestion [None]
  - Tachycardia [None]
  - Pharyngeal swelling [None]
  - Syncope [None]
  - Headache [None]

NARRATIVE: CASE EVENT DATE: 20220331
